FAERS Safety Report 11944985 (Version 2)
Quarter: 2016Q1

REPORT INFORMATION
  Report Type: Spontaneous
  Country: NG (occurrence: NG)
  Receive Date: 20160125
  Receipt Date: 20160128
  Transmission Date: 20160526
  Serious: Yes (Death, Other)
  Sender: FDA-Public Use
  Company Number: PHHY2016NG008858

PATIENT
  Sex: Male

DRUGS (1)
  1. EXFORGE [Suspect]
     Active Substance: AMLODIPINE BESYLATE\VALSARTAN
     Indication: HYPERTENSION
     Dosage: 1 DF (10 MG AMLO AND 320 MG VALS, QD
     Route: 048

REACTIONS (3)
  - Sudden death [Fatal]
  - Swollen tongue [Unknown]
  - Lip swelling [Unknown]

NARRATIVE: CASE EVENT DATE: 201512
